FAERS Safety Report 18442609 (Version 23)
Quarter: 2023Q2

REPORT INFORMATION
  Report Type: Report from Study
  Country: US (occurrence: US)
  Receive Date: 20201029
  Receipt Date: 20230626
  Transmission Date: 20230721
  Serious: Yes (Hospitalization, Other)
  Sender: FDA-Public Use
  Company Number: NVSC2020US287008

PATIENT
  Age: 16 Month
  Sex: Female
  Weight: 7.055 kg

DRUGS (10)
  1. ZOLGENSMA [Suspect]
     Active Substance: ONASEMNOGENE ABEPARVOVEC-XIOI
     Indication: Spinal muscular atrophy
     Dosage: 30.3 ML, ONCE/SINGLE
     Route: 042
     Dates: start: 20200729
  2. PREDNISOLONE [Concomitant]
     Active Substance: PREDNISOLONE
     Indication: Spinal muscular atrophy
     Dosage: 6 MG, QD
     Route: 065
     Dates: start: 20200727, end: 20200912
  3. PREDNISOLONE [Concomitant]
     Active Substance: PREDNISOLONE
     Dosage: 12 MG, QD
     Route: 065
     Dates: start: 20200912, end: 20201015
  4. PREDNISOLONE [Concomitant]
     Active Substance: PREDNISOLONE
     Dosage: 9 MG, QD
     Route: 065
     Dates: start: 20201015, end: 20201021
  5. PREDNISOLONE [Concomitant]
     Active Substance: PREDNISOLONE
     Dosage: 6 MG, QD
     Route: 065
     Dates: start: 20201022, end: 20201028
  6. PREDNISOLONE [Concomitant]
     Active Substance: PREDNISOLONE
     Dosage: 3 MG, QD
     Route: 065
     Dates: start: 20201029, end: 20201104
  7. PREDNISOLONE [Concomitant]
     Active Substance: PREDNISOLONE
     Dosage: 1.5 MG, QD
     Route: 065
     Dates: start: 20201105
  8. PRELONE [Concomitant]
     Active Substance: PREDNISOLONE
     Indication: Product used for unknown indication
     Dosage: 2 ML
     Route: 065
     Dates: start: 20200727, end: 20200916
  9. ORAPRED [Concomitant]
     Active Substance: PREDNISOLONE SODIUM PHOSPHATE
     Indication: Product used for unknown indication
     Dosage: 4 ML, QD IN MORNING
     Route: 065
     Dates: start: 20200916, end: 20201015
  10. ORAPRED [Concomitant]
     Active Substance: PREDNISOLONE SODIUM PHOSPHATE
     Dosage: 3 ML
     Route: 065
     Dates: start: 20201015, end: 20201221

REACTIONS (14)
  - Hepatosplenomegaly [Unknown]
  - Blood creatine phosphokinase MB increased [Unknown]
  - Troponin increased [Recovered/Resolved]
  - Haemorrhage [Unknown]
  - COVID-19 [Recovered/Resolved]
  - Pyrexia [Not Recovered/Not Resolved]
  - Nasal congestion [Unknown]
  - Cough [Recovering/Resolving]
  - Nausea [Recovered/Resolved]
  - Tachycardia [Recovered/Resolved]
  - Weight increased [Recovered/Resolved]
  - Hyperhidrosis [Recovered/Resolved]
  - Troponin I increased [Recovering/Resolving]
  - Gamma-glutamyltransferase increased [Recovered/Resolved]

NARRATIVE: CASE EVENT DATE: 20200812
